FAERS Safety Report 6293529-5 (Version None)
Quarter: 2009Q3

REPORT INFORMATION
  Report Type: 
  Country: None (occurrence: None)
  Receive Date: 20090729
  Receipt Date: 20090323
  Transmission Date: 20100115
  Serious: Yes (Hospitalization, Other)
  Sender: FDA-Public Use
  Company Number: 1000005498

PATIENT
  Age: 20 Day
  Sex: Male
  Weight: 2.5 kg

DRUGS (7)
  1. INDOMETHACIN [Suspect]
     Dosage: (10 MG/KG), ENTERALLY
  2. DOPAMINE (INJECTION FOR INFUSION) [Concomitant]
  3. DOBUTAMIN (INJECTION FOR INFUSION) [Concomitant]
  4. MILRINONE (INJECTION FOR INFUSION) [Concomitant]
  5. FUROSEMIDE (INJECTION FOR INFUSION) [Concomitant]
  6. VANCOMYCIN [Concomitant]
  7. AMIKACIN [Concomitant]

REACTIONS (4)
  - DRUG ADMINISTRATION ERROR [None]
  - DRUG PRESCRIBING ERROR [None]
  - OVERDOSE [None]
  - RENAL FAILURE NEONATAL [None]
